FAERS Safety Report 5964256-6 (Version None)
Quarter: 2008Q4

REPORT INFORMATION
  Report Type: 
  Country: None (occurrence: None)
  Receive Date: 20081124
  Receipt Date: 20081117
  Transmission Date: 20090506
  Serious: Yes (Other)
  Sender: FDA-Public Use
  Company Number: DE-PFIZER INC-2008098577

PATIENT
  Age: 71 Year
  Sex: Female

DRUGS (2)
  1. TOVIAZ [Suspect]
     Dosage: TEXT:TDD:4 MG
     Dates: start: 20081027
  2. ALL OTHER THERAPEUTIC PRODUCTS [Concomitant]

REACTIONS (1)
  - CEREBROVASCULAR ACCIDENT [None]
